FAERS Safety Report 20018268 (Version 1)
Quarter: 2021Q4

REPORT INFORMATION
  Report Type: Other
  Country: CN (occurrence: CN)
  Receive Date: 20211101
  Receipt Date: 20211101
  Transmission Date: 20220303
  Serious: Yes (Other)
  Sender: FDA-Public Use
  Company Number: CN-BoehringerIngelheim-2021-BI-133338

PATIENT

DRUGS (2)
  1. ALTEPLASE [Suspect]
     Active Substance: ALTEPLASE
     Indication: Ischaemic stroke
     Dosage: 0.9 MG/KG (INITIAL 10% OF DOSE GIVEN AS BOLUS OVER 1 MIN)
     Route: 042
  2. ALTEPLASE [Suspect]
     Active Substance: ALTEPLASE
     Dosage: 0.9 MG/KG (MAXIMUM DOSE 90 MG OVER 60 MIN)
     Route: 042

REACTIONS (2)
  - Haemorrhage intracranial [Unknown]
  - Off label use [Unknown]
